FAERS Safety Report 11722890 (Version 1)
Quarter: 2015Q4

REPORT INFORMATION
  Report Type: Spontaneous
  Country: US (occurrence: US)
  Receive Date: 20151111
  Receipt Date: 20151111
  Transmission Date: 20160304
  Serious: No
  Sender: FDA-Public Use
  Company Number: US-BIOGENIDEC-2015BI147833

PATIENT
  Sex: Female

DRUGS (1)
  1. AVONEX [Suspect]
     Active Substance: INTERFERON BETA-1A
     Indication: MULTIPLE SCLEROSIS
     Route: 030
     Dates: start: 19970101, end: 19990101

REACTIONS (4)
  - Gait disturbance [Not Recovered/Not Resolved]
  - Amnesia [Not Recovered/Not Resolved]
  - Balance disorder [Not Recovered/Not Resolved]
  - Visual acuity reduced [Not Recovered/Not Resolved]
